FAERS Safety Report 11969636 (Version 1)
Quarter: 2016Q1

REPORT INFORMATION
  Report Type: Report from Study
  Country: US (occurrence: US)
  Receive Date: 20160128
  Receipt Date: 20160128
  Transmission Date: 20160526
  Serious: Yes (Death, Hospitalization)
  Sender: FDA-Public Use
  Company Number: US-BIOGEN-2015BI073949

PATIENT
  Age: 68 Year
  Sex: Male

DRUGS (2)
  1. TYSABRI [Suspect]
     Active Substance: NATALIZUMAB
     Indication: MULTIPLE SCLEROSIS
     Route: 042
  2. TYSABRI [Suspect]
     Active Substance: NATALIZUMAB
     Route: 042
     Dates: start: 20121221, end: 20150320

REACTIONS (10)
  - Lung cancer metastatic [Fatal]
  - Cerebrovascular accident [Unknown]
  - Headache [Unknown]
  - Fatigue [Unknown]
  - Gait disturbance [Unknown]
  - Muscle spasms [Unknown]
  - Mobility decreased [Unknown]
  - Incontinence [Unknown]
  - Cardiac arrest [Fatal]
  - Oxygen saturation decreased [Unknown]

NARRATIVE: CASE EVENT DATE: 20150505
